FAERS Safety Report 7179378-4 (Version None)
Quarter: 2010Q4

REPORT INFORMATION
  Report Type: 
  Country: None (occurrence: None)
  Receive Date: 20101217
  Receipt Date: 20101217
  Transmission Date: 20110411
  Serious: Yes (Hospitalization, Other)
  Sender: FDA-Public Use
  Company Number: None

PATIENT
  Age: 86 Year
  Sex: Male
  Weight: 70 kg

DRUGS (2)
  1. WARFARIN SODIUM [Suspect]
     Dosage: 3MG EVERY DAY PO
     Route: 048
     Dates: start: 20090423, end: 20101118
  2. COUMADIN [Suspect]
     Dosage: 4MG EVERY DAY PO
     Route: 048
     Dates: start: 20100802, end: 20101118

REACTIONS (10)
  - BLOOD UREA INCREASED [None]
  - COAGULATION TIME ABNORMAL [None]
  - CONTUSION [None]
  - DIZZINESS [None]
  - FALL [None]
  - HAEMATURIA [None]
  - INTERNATIONAL NORMALISED RATIO INCREASED [None]
  - ORTHOSTATIC HYPOTENSION [None]
  - PALPITATIONS [None]
  - SYNCOPE [None]
